FAERS Safety Report 6984458-X (Version None)
Quarter: 2010Q3

REPORT INFORMATION
  Report Type: 
  Country: None (occurrence: None)
  Receive Date: 20100827
  Receipt Date: 20100511
  Transmission Date: 20110219
  Serious: No
  Sender: FDA-Public Use
  Company Number: 011778

PATIENT
  Sex: Female

DRUGS (2)
  1. LACOSAMIDE [Suspect]
     Indication: CONVULSION
     Dosage: (50 MG BID ORAL)
     Route: 048
  2. LAMOTRIGINE [Concomitant]

REACTIONS (1)
  - ANGER [None]
